FAERS Safety Report 15178044 (Version 1)
Quarter: 2018Q3

REPORT INFORMATION
  Report Type: Spontaneous
  Country: US (occurrence: US)
  Receive Date: 20180721
  Receipt Date: 20180721
  Transmission Date: 20181010
  Serious: No
  Sender: FDA-Public Use
  Company Number: US-B.I. PHARMACEUTICALS,INC./RIDGEFIELD-2018-BI-037289

PATIENT
  Age: 80 Year
  Sex: Female

DRUGS (10)
  1. SYSTANE EYEDROPS [Concomitant]
     Active Substance: POLYETHYLENE GLYCOL 400\PROPYLENE GLYCOL
     Indication: DRY EYE
     Dosage: 1 DROP IN EACH EYE 3 TIMES DAILY;
     Route: 050
  2. SYSTANE EYEDROPS [Concomitant]
     Active Substance: POLYETHYLENE GLYCOL 400\PROPYLENE GLYCOL
     Indication: MACULAR DEGENERATION
  3. ALBUTEROL. [Concomitant]
     Active Substance: ALBUTEROL
     Indication: BRONCHITIS CHRONIC
     Dosage: 2?4 PUFFS DAILY AS NEEDED;  FORMULATION: INHALATION SPRAY;
     Route: 055
  4. ASPIRIN. [Concomitant]
     Active Substance: ASPIRIN
     Indication: THROMBOSIS PROPHYLAXIS
  5. ALBUTEROL SOLUTION [Concomitant]
     Indication: BRONCHITIS CHRONIC
     Dosage: 1 VIAL VIA NEBULIZER 4 TIMES DAILY AS NEEDED;  FORMULATION: INHALATION SOLUTION;
     Route: 055
  6. FISH OIL [Concomitant]
     Active Substance: FISH OIL
     Indication: CARDIAC DISCOMFORT
     Dosage: 1 CAPSULE DAILY;  FORM STRENGTH: 1000MG; FORMULATION: CAPSULE
     Route: 048
  7. LEVOTHYOXINE [Concomitant]
     Indication: HYPOTHYROIDISM
     Dosage: 1 TABLET DAILY;  FORM STRENGTH: 50MCG; FORMULATION: TABLET
     Route: 048
     Dates: start: 2016
  8. AMLODIPINE [Concomitant]
     Active Substance: AMLODIPINE BESYLATE
     Indication: HYPERTENSION
     Dosage: 1 TABLET DAILY;  FORM STRENGTH: 2.5MG; FORMULATION: TABLET
     Route: 048
     Dates: start: 2017
  9. SPIOLTO [Suspect]
     Active Substance: OLODATEROL HYDROCHLORIDE\TIOTROPIUM BROMIDE MONOHYDRATE
     Indication: BRONCHITIS CHRONIC
     Dosage: 2 PUFFS ONCE PER DAY;  FORM STRENGTH: 2.5 MCG; : INHALATION SPRAY ACTION(S) : DOSE NOT CHANGED
     Route: 055
     Dates: start: 20180402
  10. ASPIRIN. [Concomitant]
     Active Substance: ASPIRIN
     Indication: CARDIAC DISCOMFORT
     Dosage: 2 TABLET DAILY;  FORM STRENGTH: 81MG; FORMULATION: TABLET
     Route: 048
     Dates: start: 2017

REACTIONS (3)
  - Diarrhoea [Not Recovered/Not Resolved]
  - Cough [Not Recovered/Not Resolved]
  - Rash macular [Not Recovered/Not Resolved]

NARRATIVE: CASE EVENT DATE: 201806
